FAERS Safety Report 8399197 (Version 3)
Quarter: 2013Q2

REPORT INFORMATION
  Report Type: Spontaneous
  Country: CA (occurrence: CA)
  Receive Date: 20120210
  Receipt Date: 20130605
  Transmission Date: 20140414
  Serious: Yes (Hospitalization)
  Sender: FDA-Public Use
  Company Number: CA-JNJFOC-20120201870

PATIENT
  Age: 76 Year
  Sex: Female
  Weight: 71.67 kg

DRUGS (2)
  1. REMICADE [Suspect]
     Indication: COLITIS ULCERATIVE
     Route: 042
     Dates: start: 20070723
  2. REMICADE [Suspect]
     Indication: COLITIS ULCERATIVE
     Dosage: THE PATIENT HAD RECEIVED APPROXIMATELY 50 INFUSIONS
     Route: 042
     Dates: start: 20120131

REACTIONS (1)
  - Herpes zoster [Recovered/Resolved]
